FAERS Safety Report 6575348-5 (Version None)
Quarter: 2010Q1

REPORT INFORMATION
  Report Type: 
  Country: None (occurrence: None)
  Receive Date: 20100209
  Receipt Date: 20100203
  Transmission Date: 20100710
  Serious: Yes (Other)
  Sender: FDA-Public Use
  Company Number: SE-ROCHE-683592

PATIENT

DRUGS (2)
  1. CAPECITABINE [Suspect]
     Indication: BREAST CANCER
     Dosage: DOSE AND FREQUENCY: ON DAYS 1-15 OF THE CYCLE; CYCLE REPEATED ON D. 22,  TAKEN AS PER PROTOCOL
     Route: 048
  2. DOCETAXEL [Suspect]
     Indication: BREAST CANCER
     Dosage: ON DAYS 1-15 OF THE CYCLE; CYCLE REPEATED ON D. 22. DRUG, DOSE AND FREQUENCY TAKEN AS PER PROTOCOL.
     Route: 042

REACTIONS (2)
  - CHEST PAIN [None]
  - CORONARY ARTERY STENOSIS [None]
